FAERS Safety Report 12329411 (Version 1)
Quarter: 2016Q2

REPORT INFORMATION
  Report Type: Spontaneous
  Country: US (occurrence: US)
  Receive Date: 20160503
  Receipt Date: 20160503
  Transmission Date: 20160815
  Serious: No
  Sender: FDA-Public Use
  Company Number: US-ACTELION-A-US2016-135269

PATIENT
  Age: 71 Year
  Sex: Male

DRUGS (1)
  1. VALCHLOR [Suspect]
     Active Substance: MECHLORETHAMINE
     Indication: MYCOSIS FUNGOIDES
     Dosage: 0.016 %, UNK
     Route: 061
     Dates: start: 20160412

REACTIONS (3)
  - Pain in extremity [Not Recovered/Not Resolved]
  - Peripheral swelling [Not Recovered/Not Resolved]
  - Gout [Not Recovered/Not Resolved]
